FAERS Safety Report 6843541-X (Version None)
Quarter: 2010Q3

REPORT INFORMATION
  Report Type: 
  Country: None (occurrence: None)
  Receive Date: 20100715
  Receipt Date: 20100708
  Transmission Date: 20110219
  Serious: Yes (Other)
  Sender: FDA-Public Use
  Company Number: FR-ASTRAZENECA-2010SE32003

PATIENT
  Age: 63 Year
  Sex: Male

DRUGS (8)
  1. CRESTOR [Suspect]
     Indication: DYSLIPIDAEMIA
     Route: 048
     Dates: start: 20070101
  2. NEXIUM [Concomitant]
     Route: 048
  3. SYMBICORT [Concomitant]
     Indication: HYPERTENSION
     Route: 055
  4. VENTOLIN [Concomitant]
     Indication: HYPERTENSION
     Route: 055
  5. KENACORT [Concomitant]
     Route: 030
     Dates: start: 20070101
  6. VOLTAREN [Concomitant]
  7. DI ANTALVIC [Concomitant]
  8. ALLOPURINOL [Concomitant]
     Indication: GOUT

REACTIONS (1)
  - OSTEONECROSIS [None]
